FAERS Safety Report 9465513 (Version 2)
Quarter: 2013Q3

REPORT INFORMATION
  Report Type: Spontaneous
  Country: BR (occurrence: BR)
  Receive Date: 20130820
  Receipt Date: 20130820
  Transmission Date: 20140515
  Serious: Yes (Other)
  Sender: FDA-Public Use
  Company Number: BR-AMGEN-BRASP2013004114

PATIENT
  Age: 44 Year
  Sex: Female
  Weight: 53.5 kg

DRUGS (4)
  1. ENBREL [Suspect]
     Indication: RHEUMATOID ARTHRITIS
     Dosage: 50 MG, ONCE WEEKLY
     Route: 058
     Dates: end: 2013
  2. ENBREL [Suspect]
     Dosage: UNK
     Route: 065
  3. METHOTREXATE [Concomitant]
     Dosage: WEEKLY
     Dates: start: 1995
  4. PREDNISONE [Concomitant]
     Indication: PAIN
     Dosage: UNK
     Dates: start: 1995

REACTIONS (9)
  - Blood pressure increased [Unknown]
  - Mental disorder [Unknown]
  - Feeling abnormal [Unknown]
  - Fear [Unknown]
  - Palpitations [Unknown]
  - Candida infection [Unknown]
  - Injection site pain [Unknown]
  - Anxiety [Unknown]
  - Tachycardia [Unknown]
